FAERS Safety Report 5080710-6 (Version None)
Quarter: 2006Q3

REPORT INFORMATION
  Report Type: 
  Country: None (occurrence: None)
  Receive Date: 20060809
  Receipt Date: 20060731
  Transmission Date: 20061208
  Serious: Yes (Hospitalization, Disabling)
  Sender: FDA-Public Use
  Company Number: 2006AL002121

PATIENT
  Age: 31 Year
  Sex: Female

DRUGS (5)
  1. BACTRIM[SULFATRIM](SULFAMETHOXAZOLE/TRIMETHOPRIM) [Suspect]
     Dosage: 200 MG; BID; PO
     Route: 048
     Dates: start: 20060203, end: 20060206
  2. DICLOFENAC SODIUM [Suspect]
     Dosage: 50 MG; TID; PO
     Route: 048
     Dates: start: 20060203, end: 20060203
  3. LEVOCETIRIZINE [Concomitant]
  4. CETIRIZINE [Concomitant]
  5. VALPROIC ACID [Concomitant]

REACTIONS (1)
  - ANAPHYLACTIC REACTION [None]
